FAERS Safety Report 9740195 (Version 3)
Quarter: 2014Q1

REPORT INFORMATION
  Report Type: Spontaneous
  Country: US (occurrence: US)
  Receive Date: 20131209
  Receipt Date: 20140218
  Transmission Date: 20141002
  Serious: No
  Sender: FDA-Public Use
  Company Number: US-PFIZER INC-2013345232

PATIENT
  Age: 72 Year
  Sex: Female
  Weight: 65.31 kg

DRUGS (2)
  1. ALAVERT D-12 HOUR ALLERGY + SINUS [Suspect]
     Indication: SINUS DISORDER
     Dosage: 5/ 120 MG, TWO TIMES A DAY
     Route: 048
  2. TUMS [Suspect]
     Indication: NAUSEA
     Dosage: UNK

REACTIONS (4)
  - Drug effect incomplete [Unknown]
  - Sinus headache [Unknown]
  - Nausea [Unknown]
  - Product packaging issue [Unknown]
